FAERS Safety Report 6654546-6 (Version None)
Quarter: 2010Q1

REPORT INFORMATION
  Report Type: 
  Country: None (occurrence: None)
  Receive Date: 20100326
  Receipt Date: 20100316
  Transmission Date: 20100710
  Serious: Yes (Other)
  Sender: FDA-Public Use
  Company Number: CN-PFIZER INC-2010029081

PATIENT
  Age: 38 Year
  Sex: Male

DRUGS (1)
  1. XALATAN [Suspect]
     Indication: GLAUCOMA
     Dosage: 1 DRIP IN EACH EYE NIGHTLY
     Route: 031
     Dates: start: 20010101, end: 20100220

REACTIONS (2)
  - INTRAOCULAR PRESSURE TEST ABNORMAL [None]
  - KERATITIS [None]
